FAERS Safety Report 16414756 (Version 3)
Quarter: 2019Q3

REPORT INFORMATION
  Report Type: Spontaneous
  Country: US (occurrence: US)
  Receive Date: 20190611
  Receipt Date: 20190806
  Transmission Date: 20191004
  Serious: No
  Sender: FDA-Public Use
  Company Number: US-PFIZER INC-2019244148

PATIENT
  Age: 62 Year
  Sex: Female

DRUGS (1)
  1. IBRANCE [Suspect]
     Active Substance: PALBOCICLIB
     Indication: BREAST CANCER
     Dosage: 125 MG, DAILY (ONE CAP DAILY)
     Dates: start: 20190222

REACTIONS (3)
  - Increased upper airway secretion [Unknown]
  - Pruritus [Unknown]
  - Foreign body sensation in eyes [Unknown]
